FAERS Safety Report 15475187 (Version 1)
Quarter: 2018Q4

REPORT INFORMATION
  Report Type: Spontaneous
  Country: US (occurrence: US)
  Receive Date: 20181008
  Receipt Date: 20181008
  Transmission Date: 20190205
  Serious: No
  Sender: FDA-Public Use
  Company Number: US-SA-2018SA271106

PATIENT
  Age: 57 Year
  Sex: Male

DRUGS (1)
  1. CAPZASIN HP ARTHRITIS PAIN RELIEF [Suspect]
     Active Substance: CAPSAICIN
     Indication: ARTHRITIS
     Dosage: UNK

REACTIONS (2)
  - Erythema [Unknown]
  - Skin burning sensation [Unknown]

NARRATIVE: CASE EVENT DATE: 20180926
